FAERS Safety Report 14955321 (Version 2)
Quarter: 2019Q1

REPORT INFORMATION
  Report Type: Spontaneous
  Country: IT (occurrence: IT)
  Receive Date: 20180531
  Receipt Date: 20190212
  Transmission Date: 20190417
  Serious: Yes (Other)
  Sender: FDA-Public Use
  Company Number: IT-ROCHE-2129434

PATIENT
  Age: 79 Year
  Sex: Male
  Weight: 66 kg

DRUGS (3)
  1. COTELLIC [Suspect]
     Active Substance: COBIMETINIB
     Indication: METASTATIC MALIGNANT MELANOMA
     Dosage: CUMULATIVE DOSE WAS 9960 MG
     Route: 048
     Dates: start: 20170921, end: 20180409
  2. SUCRALFATE. [Concomitant]
     Active Substance: SUCRALFATE
  3. ZELBORAF [Suspect]
     Active Substance: VEMURAFENIB
     Indication: METASTATIC MALIGNANT MELANOMA
     Dosage: CUMULATIVE DOSE WAS 318720 MG
     Route: 048
     Dates: start: 20170921, end: 20180409

REACTIONS (6)
  - Colitis erosive [Recovered/Resolved]
  - Gastritis erosive [Recovered/Resolved]
  - Anaemia [Not Recovered/Not Resolved]
  - Asthenia [Recovered/Resolved]
  - Gamma-glutamyltransferase increased [Not Recovered/Not Resolved]
  - Ejection fraction decreased [Not Recovered/Not Resolved]

NARRATIVE: CASE EVENT DATE: 20180305
